FAERS Safety Report 4515058-9 (Version None)
Quarter: 2004Q4

REPORT INFORMATION
  Report Type: 
  Country: None (occurrence: None)
  Receive Date: 20041201
  Receipt Date: 20041124
  Transmission Date: 20050328
  Serious: Yes (Other)
  Sender: FDA-Public Use
  Company Number: US-BRISTOL-MYERS SQUIBB COMPANY-12774840

PATIENT
  Age: 67 Year
  Sex: Male
  Weight: 83 kg

DRUGS (5)
  1. CETUXIMAB [Suspect]
     Indication: COLON CANCER METASTATIC
     Dosage: CYCLE 1 WEEK 2. THERAPY INITIATED 18-OCT-2004,TOTAL DOSE THIS COURSE 1274 MG-
     Route: 042
     Dates: start: 20041025, end: 20041025
  2. FLUOROURACIL [Suspect]
     Indication: COLON CANCER METASTATIC
     Dosage: 4704MG TOTAL DOSE THIS COURSE,START OF COURSE 18-OCT-GIVEN OVER 46-48HR CONTINUOUS IV
     Route: 042
     Dates: start: 20041018, end: 20041020
  3. LEUCOVORIN [Suspect]
     Indication: COLON CANCER METASTATIC
     Dates: start: 20041018, end: 20041018
  4. IRINOTECAN [Suspect]
     Indication: COLON CANCER METASTATIC
     Dates: start: 20041018, end: 20041018
  5. PRILOSEC [Concomitant]

REACTIONS (4)
  - DEEP VEIN THROMBOSIS [None]
  - PROTHROMBIN TIME ABNORMAL [None]
  - PULMONARY EMBOLISM [None]
  - THROMBOSIS [None]
